FAERS Safety Report 13732477 (Version 4)
Quarter: 2018Q4

REPORT INFORMATION
  Report Type: Report from Study
  Country: US (occurrence: US)
  Receive Date: 20170707
  Receipt Date: 20181119
  Transmission Date: 20190204
  Serious: No
  Sender: FDA-Public Use
  Company Number: US-SA-2017SA119336

PATIENT
  Age: 62 Year
  Sex: Male

DRUGS (3)
  1. DUPILUMAB [Suspect]
     Active Substance: DUPILUMAB
     Dosage: 300 MG, QOW
     Route: 058
     Dates: start: 20180111
  2. DUPILUMAB [Suspect]
     Active Substance: DUPILUMAB
     Indication: ECZEMA
     Dosage: 300 MG,QOW
     Route: 058
  3. DUPILUMAB [Suspect]
     Active Substance: DUPILUMAB
     Indication: DERMATITIS ATOPIC
     Dosage: UNK
     Route: 058
     Dates: start: 2016

REACTIONS (4)
  - Drug ineffective [Unknown]
  - Dermatitis [Not Recovered/Not Resolved]
  - Rebound eczema [Not Recovered/Not Resolved]
  - Product dose omission [Unknown]

NARRATIVE: CASE EVENT DATE: 20181006
